FAERS Safety Report 4733023-3 (Version None)
Quarter: 2005Q3

REPORT INFORMATION
  Report Type: 
  Country: None (occurrence: None)
  Receive Date: 20050801
  Receipt Date: 20050801
  Transmission Date: 20060218
  Serious: Yes (Hospitalization)
  Sender: FDA-Public Use
  Company Number: None

PATIENT
  Sex: Female

DRUGS (1)
  1. TRIAMTERENE AND HYDROCHLOROTHIAZIDE [Suspect]
     Indication: HYPERTENSION
     Dosage: 1 TABLETS DAILY ORAL
     Route: 048
     Dates: start: 20050401, end: 20050727

REACTIONS (10)
  - BALANCE DISORDER [None]
  - COORDINATION ABNORMAL [None]
  - ECCHYMOSIS [None]
  - FALL [None]
  - HYPONATRAEMIA [None]
  - LETHARGY [None]
  - NEUROLOGICAL SYMPTOM [None]
  - PAIN [None]
  - PAIN IN EXTREMITY [None]
  - URINE SODIUM ABNORMAL [None]
